FAERS Safety Report 8167042-4 (Version None)
Quarter: 2012Q1

REPORT INFORMATION
  Report Type: 
  Country: None (occurrence: None)
  Receive Date: 20120221
  Receipt Date: 20120214
  Transmission Date: 20120608
  Serious: Yes (Hospitalization)
  Sender: FDA-Public Use
  Company Number: AXC-2012-000016

PATIENT
  Age: 59 Year
  Sex: Male

DRUGS (5)
  1. RABEPRAZOLE SODIUM [Concomitant]
  2. PANABATE (GABEXATE MESILATE) [Concomitant]
  3. URSODIOL [Suspect]
     Indication: CHOLESTASIS
     Dosage: 600 MG, QD, ORAL
     Route: 048
     Dates: start: 20110513, end: 20110530
  4. FAMOTIDINE [Suspect]
     Indication: PROPHYLAXIS AGAINST GASTROINTESTINAL ULCER
     Dosage: 20 MG, QD, ORAL
     Route: 048
  5. WYSTAL (CEFOPERAZONE SODIUM, SULBACTAM SODIUM) [Concomitant]

REACTIONS (11)
  - PROTHROMBIN TIME PROLONGED [None]
  - RASH PRURITIC [None]
  - ALANINE AMINOTRANSFERASE INCREASED [None]
  - LYMPHOCYTE STIMULATION TEST POSITIVE [None]
  - JAUNDICE [None]
  - BLOOD ALKALINE PHOSPHATASE INCREASED [None]
  - BIOPSY LIVER ABNORMAL [None]
  - LIVER DISORDER [None]
  - URTICARIA [None]
  - BLOOD BILIRUBIN INCREASED [None]
  - CHOLESTASIS [None]
